FAERS Safety Report 11097487 (Version 1)
Quarter: 2015Q2

REPORT INFORMATION
  Report Type: Spontaneous
  Country: US (occurrence: None)
  Receive Date: 20150507
  Receipt Date: 20150507
  Transmission Date: 20150821
  Serious: No
  Sender: FDA-Public Use
  Company Number: None

PATIENT
  Age: 57 Year
  Sex: Male
  Weight: 80.9 kg

DRUGS (1)
  1. CISPLATIN. [Suspect]
     Active Substance: CISPLATIN
     Dates: end: 20150413

REACTIONS (18)
  - Erythema [None]
  - Hyperhidrosis [None]
  - Pulmonary infarction [None]
  - Neutropenia [None]
  - Dyspnoea [None]
  - Tachycardia [None]
  - Pallor [None]
  - Haemoptysis [None]
  - Tracheostomy malfunction [None]
  - Increased bronchial secretion [None]
  - Bundle branch block right [None]
  - Apnoea [None]
  - Pulmonary haemorrhage [None]
  - Pulse absent [None]
  - Nausea [None]
  - Cold sweat [None]
  - Asthenia [None]
  - Pulmonary embolism [None]

NARRATIVE: CASE EVENT DATE: 20150428
